FAERS Safety Report 15771949 (Version 2)
Quarter: 2019Q2

REPORT INFORMATION
  Report Type: Spontaneous
  Country: US (occurrence: US)
  Receive Date: 20181228
  Receipt Date: 20190509
  Transmission Date: 20190711
  Serious: No
  Sender: FDA-Public Use
  Company Number: US-JNJFOC-20181212482

PATIENT
  Age: 21 Year
  Sex: Male

DRUGS (1)
  1. INVEGA TRINZA [Suspect]
     Active Substance: PALIPERIDONE PALMITATE
     Indication: SCHIZOPHRENIA
     Route: 030
     Dates: start: 20170202, end: 20170615

REACTIONS (2)
  - Psychotic disorder [Recovered/Resolved]
  - Hallucination, auditory [Unknown]

NARRATIVE: CASE EVENT DATE: 20170410
